FAERS Safety Report 10781165 (Version 1)
Quarter: 2015Q1

REPORT INFORMATION
  Report Type: Spontaneous
  Country: US (occurrence: US)
  Receive Date: 20150210
  Receipt Date: 20150210
  Transmission Date: 20150721
  Serious: No
  Sender: FDA-Public Use
  Company Number: US-GLAXOSMITHKLINE-A1062293A

PATIENT

DRUGS (2)
  1. TRAZODONE [Concomitant]
     Active Substance: TRAZODONE HYDROCHLORIDE
     Dates: start: 2013
  2. NICODERM CQ [Suspect]
     Active Substance: NICOTINE
     Indication: NICOTINE DEPENDENCE

REACTIONS (3)
  - Drug administration error [Unknown]
  - Condition aggravated [Unknown]
  - Abnormal dreams [Unknown]
